FAERS Safety Report 9393351 (Version 1)
Quarter: 2013Q3

REPORT INFORMATION
  Report Type: Spontaneous
  Country: JP (occurrence: JP)
  Receive Date: 20130710
  Receipt Date: 20130710
  Transmission Date: 20140515
  Serious: Yes (Hospitalization, Other)
  Sender: FDA-Public Use
  Company Number: JP-JNJFOC-20130613009

PATIENT
  Age: 86 Year
  Sex: Female
  Weight: 48 kg

DRUGS (7)
  1. XARELTO [Suspect]
     Indication: CEREBROVASCULAR ACCIDENT PROPHYLAXIS
     Route: 048
     Dates: start: 20130605, end: 20130611
  2. XARELTO [Suspect]
     Indication: ATRIAL FIBRILLATION
     Route: 048
     Dates: start: 20130605, end: 20130611
  3. PRAVASTATIN SODIUM [Concomitant]
     Route: 048
  4. ALLOPURINOL [Concomitant]
     Route: 048
  5. SPIRONOLACTONE [Concomitant]
     Route: 048
  6. DIGOXIN [Concomitant]
     Route: 048
  7. FAMOTIDINE [Concomitant]
     Route: 048
     Dates: start: 20130605

REACTIONS (2)
  - Melaena [Recovering/Resolving]
  - Colitis ischaemic [Recovering/Resolving]
